FAERS Safety Report 7374508-3 (Version None)
Quarter: 2011Q1

REPORT INFORMATION
  Report Type: 
  Country: None (occurrence: None)
  Receive Date: 20110325
  Receipt Date: 20110128
  Transmission Date: 20110831
  Serious: No
  Sender: FDA-Public Use
  Company Number: US-MYLANLABS-2011S1002142

PATIENT
  Age: 45 Year
  Sex: Male

DRUGS (1)
  1. FENTANYL-100 [Suspect]
     Indication: PAIN
     Dosage: CHANGED Q72H
     Route: 062

REACTIONS (3)
  - LIVER DISORDER [None]
  - CONDITION AGGRAVATED [None]
  - GASTROINTESTINAL PAIN [None]
